FAERS Safety Report 9667869 (Version 2)
Quarter: 2014Q2

REPORT INFORMATION
  Report Type: Spontaneous
  Country: CH (occurrence: CH)
  Receive Date: 20131104
  Receipt Date: 20140522
  Transmission Date: 20141212
  Serious: Yes (Other)
  Sender: FDA-Public Use
  Company Number: CH-PFIZER INC-2013312284

PATIENT
  Age: 31 Year
  Sex: Female

DRUGS (2)
  1. EFEXOR ER [Suspect]
     Indication: GENERALISED ANXIETY DISORDER
     Dosage: 225 MG, 1X/DAY
     Dates: start: 2010, end: 20130612
  2. SERETIDE [Concomitant]
     Indication: BRONCHOPULMONARY ASPERGILLOSIS
     Dosage: 1 DF, 2X/DAY
     Dates: start: 2010

REACTIONS (2)
  - Feeding disorder [Unknown]
  - Generalised anxiety disorder [Unknown]
